FAERS Safety Report 18492878 (Version 1)
Quarter: 2020Q4

REPORT INFORMATION
  Report Type: Spontaneous
  Country: US (occurrence: US)
  Receive Date: 20201112
  Receipt Date: 20201112
  Transmission Date: 20210114
  Serious: No
  Sender: FDA-Public Use
  Company Number: US-ORIENT PHARMA-000035

PATIENT
  Sex: Male

DRUGS (7)
  1. PLAVIX [Concomitant]
     Active Substance: CLOPIDOGREL BISULFATE
  2. LIPITOR [Concomitant]
     Active Substance: ATORVASTATIN CALCIUM
  3. NEXIUM [Concomitant]
     Active Substance: ESOMEPRAZOLE MAGNESIUM
  4. CARISOPRODOL ORIENT PHARMA [Suspect]
     Active Substance: CARISOPRODOL
     Indication: BACK PAIN
     Dosage: ONE-QUARTER TO ONE-HALF TABLET
     Route: 048
     Dates: start: 20201019
  5. FLOMAX [Concomitant]
     Active Substance: TAMSULOSIN HYDROCHLORIDE
  6. RAPAFLO [Concomitant]
     Active Substance: SILODOSIN
  7. ACETYLSALICYLIC ACID [Concomitant]
     Active Substance: ASPIRIN

REACTIONS (5)
  - Dysgeusia [Unknown]
  - Hangover [Unknown]
  - Drug ineffective [Unknown]
  - Headache [Unknown]
  - Product substitution issue [Unknown]
